FAERS Safety Report 4678280-7 (Version None)
Quarter: 2005Q2

REPORT INFORMATION
  Report Type: 
  Country: None (occurrence: None)
  Receive Date: 20050527
  Receipt Date: 20050512
  Transmission Date: 20051028
  Serious: Yes (Other)
  Sender: FDA-Public Use
  Company Number: 212935

PATIENT
  Weight: 2.1 kg

DRUGS (1)
  1. ACTIVASE [Suspect]
     Indication: DRUG EXPOSURE DURING PREGNANCY
     Dosage: 60 MG, SINGLE, INTRAVENOUS
     Route: 042

REACTIONS (2)
  - DRUG EXPOSURE DURING PREGNANCY [None]
  - PREMATURE BABY [None]
